FAERS Safety Report 8290804-X (Version None)
Quarter: 2012Q2

REPORT INFORMATION
  Report Type: 
  Country: None (occurrence: None)
  Receive Date: 20120417
  Receipt Date: 20120409
  Transmission Date: 20120825
  Serious: Yes (Hospitalization, Other)
  Sender: FDA-Public Use
  Company Number: US-ROCHE-1044332

PATIENT
  Sex: Female

DRUGS (1)
  1. ZELBORAF [Suspect]
     Indication: PRODUCT USED FOR UNKNOWN INDICATION
     Route: 065

REACTIONS (9)
  - ILL-DEFINED DISORDER [None]
  - JAUNDICE [None]
  - ANGIOPATHY [None]
  - BLOOD BILIRUBIN DECREASED [None]
  - UVEITIS [None]
  - BLOOD BILIRUBIN INCREASED [None]
  - LIVER DISORDER [None]
  - MUSCULOSKELETAL DISORDER [None]
  - HEPATOTOXICITY [None]
